FAERS Safety Report 7336744-1 (Version None)
Quarter: 2011Q1

REPORT INFORMATION
  Report Type: 
  Country: None (occurrence: None)
  Receive Date: 20110308
  Receipt Date: 20110225
  Transmission Date: 20110831
  Serious: No
  Sender: FDA-Public Use
  Company Number: US-BIOGENIDEC-2011BI001545

PATIENT
  Sex: Female

DRUGS (1)
  1. TYSABRI [Suspect]
     Indication: MULTIPLE SCLEROSIS
     Route: 042
     Dates: start: 20101215

REACTIONS (5)
  - VIRAL INFECTION [None]
  - GASTROENTERITIS VIRAL [None]
  - ABDOMINAL PAIN UPPER [None]
  - NASOPHARYNGITIS [None]
  - DRUG INEFFECTIVE [None]
